FAERS Safety Report 9425186 (Version 1)
Quarter: 2013Q3

REPORT INFORMATION
  Report Type: Spontaneous
  Country: US (occurrence: US)
  Receive Date: 20130729
  Receipt Date: 20130729
  Transmission Date: 20140515
  Serious: Yes (Hospitalization)
  Sender: FDA-Public Use
  Company Number: US-BANPHARM-20131504

PATIENT
  Age: 53 Year
  Sex: Male

DRUGS (1)
  1. IBUPROFEN UNKNOWN PRODUCT [Suspect]
     Indication: BACK PAIN
     Dosage: 70 DF, OVER 4 DAYS WITH MAJORITY CONSUMED OVER THE LAST DAY,

REACTIONS (12)
  - Meningitis staphylococcal [Recovered/Resolved]
  - Sepsis [Recovered/Resolved]
  - Systemic inflammatory response syndrome [Recovering/Resolving]
  - Respiratory distress [Recovered/Resolved]
  - Renal failure [Recovered/Resolved]
  - Cardiac arrest [Recovered/Resolved]
  - Pneumonia [Recovered/Resolved]
  - Staphylococcal infection [Recovered/Resolved]
  - Septic shock [Recovered/Resolved]
  - Sleep apnoea syndrome [Unknown]
  - Inappropriate antidiuretic hormone secretion [Recovered/Resolved]
  - Overdose [Recovered/Resolved]
